FAERS Safety Report 4746302-0 (Version None)
Quarter: 2005Q3

REPORT INFORMATION
  Report Type: 
  Country: None (occurrence: None)
  Receive Date: 20050816
  Receipt Date: 20050816
  Transmission Date: 20060218
  Serious: Yes (Hospitalization)
  Sender: FDA-Public Use
  Company Number: None

PATIENT
  Age: 89 Year
  Sex: Male
  Weight: 71 kg

DRUGS (12)
  1. ATENOLOL [Suspect]
     Indication: HEART RATE
     Dosage: 25MG   DAILY   ORAL
     Route: 048
     Dates: start: 20040923, end: 20050719
  2. ATENOLOL [Suspect]
     Indication: HYPERTENSION
     Dosage: 25MG   DAILY   ORAL
     Route: 048
     Dates: start: 20040923, end: 20050719
  3. LISINOPRIL [Concomitant]
  4. CHLORTHALIDONE [Concomitant]
  5. CITALOPRAM [Concomitant]
  6. HYDRALAZINE [Concomitant]
  7. ISOSORBIDE MONONITRATE [Concomitant]
  8. FERROUS SULFATE TAB [Concomitant]
  9. FOLIC ACID [Concomitant]
  10. SENNA [Concomitant]
  11. TRAMADOL HCL [Concomitant]
  12. OMEPRAZOLE [Concomitant]

REACTIONS (2)
  - BRADYCARDIA [None]
  - HYPERTENSION [None]
